FAERS Safety Report 6366954-1 (Version None)
Quarter: 2009Q3

REPORT INFORMATION
  Report Type: 
  Country: None (occurrence: None)
  Receive Date: 20090821
  Receipt Date: 20090713
  Transmission Date: 20100115
  Serious: No
  Sender: FDA-Public Use
  Company Number: 8048972

PATIENT
  Age: 50 Year
  Sex: Female
  Weight: 54 kg

DRUGS (3)
  1. CIMZIA [Suspect]
     Dosage: 400 MG SC
     Route: 058
     Dates: start: 20090511
  2. ENTOCORT EC [Concomitant]
  3. BIRTH CONTROL PILLS [Concomitant]

REACTIONS (1)
  - URINARY TRACT INFECTION [None]
